FAERS Safety Report 10884927 (Version 1)
Quarter: 2015Q1

REPORT INFORMATION
  Report Type: Spontaneous
  Country: US (occurrence: US)
  Receive Date: 20150304
  Receipt Date: 20150304
  Transmission Date: 20150721
  Serious: Yes (Hospitalization)
  Sender: FDA-Public Use
  Company Number: US-TEVA-507686USA

PATIENT
  Age: 55 Year
  Sex: Female

DRUGS (1)
  1. AMOXICILLIN. [Suspect]
     Active Substance: AMOXICILLIN
     Indication: INFECTION
     Dosage: 750 MILLIGRAM DAILY; 1 TEASPOON
     Route: 048
     Dates: start: 20140824, end: 20140827

REACTIONS (5)
  - Pruritus [Unknown]
  - Hospitalisation [Unknown]
  - Rash erythematous [Unknown]
  - Feeling abnormal [Not Recovered/Not Resolved]
  - Psychomotor hyperactivity [Unknown]

NARRATIVE: CASE EVENT DATE: 201408
